FAERS Safety Report 19473056 (Version 1)
Quarter: 2021Q2

REPORT INFORMATION
  Report Type: Other
  Country: US (occurrence: US)
  Receive Date: 20210629
  Receipt Date: 20210629
  Transmission Date: 20210717
  Serious: Yes (Hospitalization)
  Sender: FDA-Public Use
  Company Number: US-ROCHE-2857295

PATIENT
  Age: 67 Year
  Sex: Female

DRUGS (4)
  1. OBINUTUZUMAB. [Suspect]
     Active Substance: OBINUTUZUMAB
     Indication: CHRONIC LYMPHOCYTIC LEUKAEMIA
     Route: 065
  2. ALEMTUZUMAB [Concomitant]
     Active Substance: ALEMTUZUMAB
  3. PENTOSTATIN. [Concomitant]
     Active Substance: PENTOSTATIN
  4. PREDNISONE. [Concomitant]
     Active Substance: PREDNISONE

REACTIONS (5)
  - Skin induration [Unknown]
  - Rash [Unknown]
  - Scleral hyperaemia [Unknown]
  - Pruritus [Unknown]
  - Papule [Unknown]
